FAERS Safety Report 8001814-1 (Version None)
Quarter: 2011Q4

REPORT INFORMATION
  Report Type: 
  Country: None (occurrence: None)
  Receive Date: 20111222
  Receipt Date: 20111214
  Transmission Date: 20120403
  Serious: Yes (Hospitalization)
  Sender: FDA-Public Use
  Company Number: US-BAYER-2011-041069

PATIENT
  Age: 30 Year
  Sex: Female
  Weight: 81.633 kg

DRUGS (8)
  1. CARISOPRODOL [Concomitant]
     Dosage: 350 MG, UNK
  2. HYDROCODONE BITARTRATE AND ACETAMINOPHEN [Concomitant]
  3. NORCO [Concomitant]
  4. LEVAQUIN [Concomitant]
     Dosage: 500 MG, UNK
  5. PROZAC [Concomitant]
     Indication: DEPRESSION
     Dosage: UNK
     Dates: start: 20030101, end: 20110701
  6. ALPRAZOLAM [Concomitant]
     Indication: DEPRESSION
     Dosage: 0.5 MG, UNK
     Dates: start: 20071027, end: 20090303
  7. YAZ [Suspect]
     Indication: ORAL CONTRACEPTION
     Dosage: UNK
     Dates: start: 20080131, end: 20080601
  8. YASMIN [Suspect]
     Indication: ORAL CONTRACEPTION
     Dosage: UNK
     Dates: start: 20040603, end: 20080131

REACTIONS (14)
  - CEREBROVASCULAR ACCIDENT [None]
  - ANXIETY [None]
  - EMOTIONAL DISTRESS [None]
  - DIZZINESS [None]
  - VOMITING [None]
  - PAIN [None]
  - HEADACHE [None]
  - DIPLOPIA [None]
  - DYSARTHRIA [None]
  - TINNITUS [None]
  - BALANCE DISORDER [None]
  - CEREBRAL INFARCTION [None]
  - HYPOAESTHESIA [None]
  - MUSCULAR WEAKNESS [None]
